FAERS Safety Report 17641392 (Version 3)
Quarter: 2020Q2

REPORT INFORMATION
  Report Type: Report from Study
  Country: US (occurrence: US)
  Receive Date: 20200408
  Receipt Date: 20200629
  Transmission Date: 20200713
  Serious: Yes (Hospitalization)
  Sender: FDA-Public Use
  Company Number: US-BIOGEN-2020BI00826438

PATIENT
  Sex: Male

DRUGS (1)
  1. TYSABRI [Suspect]
     Active Substance: NATALIZUMAB
     Indication: MULTIPLE SCLEROSIS
     Route: 065
     Dates: start: 20121107, end: 20191016

REACTIONS (15)
  - Urinary tract infection [Recovered/Resolved]
  - Constipation [Unknown]
  - Muscle spasms [Unknown]
  - Escherichia infection [Unknown]
  - Cystitis noninfective [Not Recovered/Not Resolved]
  - Confusional state [Unknown]
  - Decubitus ulcer [Not Recovered/Not Resolved]
  - Bronchitis [Recovered/Resolved]
  - Depression [Not Recovered/Not Resolved]
  - Pyrexia [Unknown]
  - Prescribed underdose [Unknown]
  - Sepsis [Unknown]
  - Mobility decreased [Not Recovered/Not Resolved]
  - Kidney infection [Unknown]
  - Dysstasia [Unknown]
